FAERS Safety Report 5974966-2 (Version None)
Quarter: 2008Q4

REPORT INFORMATION
  Report Type: 
  Country: None (occurrence: None)
  Receive Date: 20081202
  Receipt Date: 20081121
  Transmission Date: 20090506
  Serious: Yes (Other)
  Sender: FDA-Public Use
  Company Number: JP-SP-2008-02839

PATIENT
  Age: 74 Year
  Sex: Male

DRUGS (4)
  1. IMMUCYST [Suspect]
     Indication: BLADDER CANCER
     Route: 043
     Dates: start: 20080703, end: 20080724
  2. LEVOFLOXACIN HYDROCHLORIDE [Concomitant]
     Dates: start: 20080703
  3. LEVOFLOXACIN [Concomitant]
  4. CHLORMADINONE ACETATE TAB [Concomitant]

REACTIONS (2)
  - EPIDIDYMITIS [None]
  - PROSTATITIS [None]
